FAERS Safety Report 24292043 (Version 1)
Quarter: 2024Q3

REPORT INFORMATION
  Report Type: Spontaneous
  Country: US (occurrence: US)
  Receive Date: 20240906
  Receipt Date: 20240906
  Transmission Date: 20241016
  Serious: Yes (Other)
  Sender: DOMPE FARMACEUTICI
  Company Number: US-FARMAPROD-202408-2971

PATIENT
  Age: 64 Year
  Sex: Female

DRUGS (28)
  1. OXERVATE [Suspect]
     Active Substance: CENEGERMIN-BKBJ
     Indication: Neurotrophic keratopathy
     Route: 047
     Dates: start: 20240805
  2. OXERVATE [Suspect]
     Active Substance: CENEGERMIN-BKBJ
  3. VITAMIN C [Concomitant]
     Active Substance: ASCORBIC ACID
  4. CRANBERRY [Concomitant]
     Active Substance: CRANBERRY
  5. CENTRUM SILVER WOMEN [Concomitant]
  6. ASPIRIN [Concomitant]
     Active Substance: ASPIRIN
  7. OCUVITE ADULT 50 PLUS [Concomitant]
  8. PROBIOTICS NOS [Concomitant]
     Active Substance: PROBIOTICS NOS
     Dosage: 2.5 BILLION OF CELLS
  9. MOXIFLOXACIN [Concomitant]
     Active Substance: MOXIFLOXACIN
  10. TUMS [Concomitant]
     Active Substance: CALCIUM CARBONATE
     Dosage: 200(500)MG
  11. COLLAGEN [Concomitant]
     Active Substance: COLLAGEN
     Dosage: 125-740MG
  12. TRAVOPROST [Concomitant]
     Active Substance: TRAVOPROST
  13. RHOPRESSA [Concomitant]
     Active Substance: NETARSUDIL MESYLATE
  14. RESTASIS [Concomitant]
     Active Substance: CYCLOSPORINE
  15. PREDNISOLONE ACETATE [Concomitant]
     Active Substance: PREDNISOLONE ACETATE
  16. ERYTHROMYCIN [Concomitant]
     Active Substance: ERYTHROMYCIN
  17. COSOPT [Concomitant]
     Active Substance: DORZOLAMIDE HYDROCHLORIDE\TIMOLOL MALEATE
     Dosage: 22.3-6.8/1
  18. COMBIGAN [Concomitant]
     Active Substance: BRIMONIDINE TARTRATE\TIMOLOL MALEATE
     Dosage: 0.2%-0.5%
  19. SOLIFENACIN SUCCINATE [Concomitant]
     Active Substance: SOLIFENACIN SUCCINATE
  20. OMEPRAZOLE [Concomitant]
     Active Substance: OMEPRAZOLE
  21. ATORVASTATIN CALCIUM [Concomitant]
     Active Substance: ATORVASTATIN CALCIUM
  22. ESTRADIOL [Concomitant]
     Active Substance: ESTRADIOL
  23. MONTELUKAST SODIUM [Concomitant]
     Active Substance: MONTELUKAST\MONTELUKAST SODIUM
  24. PROGESTERONE [Concomitant]
     Active Substance: PROGESTERONE
  25. BUPROPION HYDROCHLORIDE [Concomitant]
     Active Substance: BUPROPION HYDROCHLORIDE
     Dosage: 12 HOURS
  26. ACETAZOLAMIDE [Concomitant]
     Active Substance: ACETAZOLAMIDE
  27. POTASSIUM CHLORIDE [Concomitant]
     Active Substance: POTASSIUM CHLORIDE
  28. IBUPROFEN [Concomitant]
     Active Substance: IBUPROFEN

REACTIONS (4)
  - Eye infection fungal [Unknown]
  - Eye pain [Recovering/Resolving]
  - Eye discharge [Recovering/Resolving]
  - Overdose [Unknown]

NARRATIVE: CASE EVENT DATE: 20240801
